FAERS Safety Report 10073362 (Version 1)
Quarter: 2014Q2

REPORT INFORMATION
  Report Type: Spontaneous
  Country: US (occurrence: US)
  Receive Date: 20140411
  Receipt Date: 20140411
  Transmission Date: 20141212
  Serious: Yes (Other)
  Sender: FDA-Public Use
  Company Number: US-TEVA-475047USA

PATIENT
  Age: 27 Year
  Sex: Female
  Weight: 74 kg

DRUGS (1)
  1. PARAGARD 380A [Suspect]
     Indication: CONTRACEPTION
     Route: 015
     Dates: start: 20140122, end: 20140409

REACTIONS (2)
  - Device dislocation [Recovered/Resolved]
  - Metrorrhagia [Not Recovered/Not Resolved]
